FAERS Safety Report 11378827 (Version 1)
Quarter: 2015Q3

REPORT INFORMATION
  Report Type: Spontaneous
  Country: US (occurrence: US)
  Receive Date: 20150811
  Receipt Date: 20150811
  Transmission Date: 20151125
  Serious: Yes (Hospitalization)
  Sender: FDA-Public Use
  Company Number: US-ELI_LILLY_AND_COMPANY-US200907006194

PATIENT
  Age: 50 Year
  Sex: Female

DRUGS (4)
  1. INSULIN ASPART [Concomitant]
     Active Substance: INSULIN ASPART
  2. INSULIN HUMAN [Concomitant]
     Active Substance: INSULIN HUMAN
  3. HUMULIN R [Suspect]
     Active Substance: INSULIN HUMAN
  4. INSULIN GLARGINE [Concomitant]
     Active Substance: INSULIN GLARGINE

REACTIONS (3)
  - Blood glucose increased [Unknown]
  - Skin mass [Unknown]
  - Nodule [Unknown]

NARRATIVE: CASE EVENT DATE: 200708
